FAERS Safety Report 13246057 (Version 1)
Quarter: 2017Q1

REPORT INFORMATION
  Report Type: Spontaneous
  Country: FR (occurrence: FR)
  Receive Date: 20170217
  Receipt Date: 20170217
  Transmission Date: 20170428
  Serious: Yes (Other)
  Sender: FDA-Public Use
  Company Number: FR-BRISTOL-MYERS SQUIBB COMPANY-BMS-2017-011718

PATIENT
  Sex: Female

DRUGS (1)
  1. OPDIVO [Suspect]
     Active Substance: NIVOLUMAB
     Indication: TUMOUR EMBOLISM
     Dosage: UNAVAILABLE
     Route: 065

REACTIONS (5)
  - Hepatic cyst [Unknown]
  - Steatorrhoea [Unknown]
  - Chromaturia [Unknown]
  - Fatigue [Unknown]
  - Pain in extremity [Unknown]
